FAERS Safety Report 24270193 (Version 2)
Quarter: 2024Q3

REPORT INFORMATION
  Report Type: Spontaneous
  Country: US (occurrence: US)
  Receive Date: 20240830
  Receipt Date: 20240904
  Transmission Date: 20241017
  Serious: Yes (Other)
  Sender: PFIZER
  Company Number: US-PFIZER INC-202400246815

PATIENT
  Sex: Female
  Weight: 48.98 kg

DRUGS (1)
  1. NURTEC ODT [Suspect]
     Active Substance: RIMEGEPANT SULFATE
     Indication: Migraine
     Dosage: UNK
     Dates: start: 202406

REACTIONS (19)
  - Toxicity to various agents [Unknown]
  - Weight decreased [Unknown]
  - Muscular weakness [Unknown]
  - Dyspnoea [Unknown]
  - Heart rate irregular [Unknown]
  - Adverse reaction [Unknown]
  - Nightmare [Unknown]
  - Diarrhoea [Not Recovered/Not Resolved]
  - Chills [Unknown]
  - Agitation [Unknown]
  - Parosmia [Unknown]
  - Anger [Unknown]
  - Feeding disorder [Unknown]
  - Hyperhidrosis [Unknown]
  - Dry skin [Unknown]
  - Palpitations [Unknown]
  - Anxiety [Unknown]
  - Dry mouth [Unknown]
  - Lack of spontaneous speech [Unknown]

NARRATIVE: CASE EVENT DATE: 20240701
